FAERS Safety Report 7864310-8 (Version None)
Quarter: 2011Q4

REPORT INFORMATION
  Report Type: 
  Country: None (occurrence: None)
  Receive Date: 20111028
  Receipt Date: 20111020
  Transmission Date: 20120403
  Serious: Yes (Hospitalization)
  Sender: FDA-Public Use
  Company Number: US-ABBOTT-11P-163-0867120-00

PATIENT
  Sex: Female
  Weight: 65.83 kg

DRUGS (4)
  1. MULTIPLE VITAMIN [Concomitant]
     Indication: VITAMIN SUPPLEMENTATION
  2. HUMIRA [Suspect]
     Indication: CROHN'S DISEASE
     Dates: start: 20080101, end: 20101201
  3. CALCIUM CARBONATE [Concomitant]
     Indication: MINERAL SUPPLEMENTATION
  4. HUMIRA [Suspect]
     Dates: start: 20101201

REACTIONS (4)
  - ARTHROPATHY [None]
  - ARTHRITIS [None]
  - ABDOMINAL ADHESIONS [None]
  - CROHN'S DISEASE [None]
